FAERS Safety Report 23270289 (Version 6)
Quarter: 2025Q1

REPORT INFORMATION
  Report Type: Report from Study
  Country: CA (occurrence: CA)
  Receive Date: 20231207
  Receipt Date: 20250324
  Transmission Date: 20250409
  Serious: Yes (Other)
  Sender: TAKEDA
  Company Number: CA-TAKEDA-2023TUS116684

PATIENT
  Sex: Female

DRUGS (4)
  1. VEDOLIZUMAB [Suspect]
     Active Substance: VEDOLIZUMAB
     Indication: Crohn^s disease
  2. VEDOLIZUMAB [Suspect]
     Active Substance: VEDOLIZUMAB
     Indication: Crohn^s disease
     Dosage: 108 MILLIGRAM, Q2WEEKS
     Dates: start: 20240223
  3. DEXILANT [Suspect]
     Active Substance: DEXLANSOPRAZOLE
     Indication: Product used for unknown indication
  4. ENTOCORT [Concomitant]
     Active Substance: BUDESONIDE

REACTIONS (16)
  - Disturbance in attention [Unknown]
  - Abdominal pain [Recovering/Resolving]
  - Dizziness [Recovered/Resolved]
  - Headache [Recovering/Resolving]
  - Fatigue [Recovering/Resolving]
  - Injection site paraesthesia [Recovered/Resolved]
  - Injection site inflammation [Recovered/Resolved]
  - Abdominal pain lower [Recovering/Resolving]
  - Abdominal pain upper [Unknown]
  - Injection site bruising [Unknown]
  - Injection site nodule [Unknown]
  - Gastrointestinal disorder [Not Recovered/Not Resolved]
  - Malaise [Unknown]
  - Injection site erythema [Recovered/Resolved]
  - Paraesthesia [Unknown]
  - Nausea [Recovering/Resolving]
